FAERS Safety Report 19574102 (Version 1)
Quarter: 2021Q3

REPORT INFORMATION
  Report Type: Spontaneous
  Country: CN (occurrence: CN)
  Receive Date: 20210718
  Receipt Date: 20210718
  Transmission Date: 20211014
  Serious: Yes (Other)
  Sender: FDA-Public Use
  Company Number: CN-BAXTER-2021BAX020654

PATIENT
  Age: 52 Year
  Sex: Male
  Weight: 60 kg

DRUGS (1)
  1. METRONIDAZOLE AND SODIUM CHLORIDE INJECTION [Suspect]
     Active Substance: METRONIDAZOLE\SODIUM CHLORIDE
     Indication: ANTI-INFECTIVE THERAPY
     Route: 041
     Dates: start: 20210606, end: 20210606

REACTIONS (2)
  - Chest discomfort [Recovered/Resolved]
  - Palpitations [Recovered/Resolved]

NARRATIVE: CASE EVENT DATE: 20210606
